FAERS Safety Report 5064371-8 (Version None)
Quarter: 2006Q3

REPORT INFORMATION
  Report Type: 
  Country: None (occurrence: None)
  Receive Date: 20060728
  Receipt Date: 20060719
  Transmission Date: 20061208
  Serious: Yes (Other)
  Sender: FDA-Public Use
  Company Number: JP-JNJFOC-20060702330

PATIENT
  Age: 37 Year
  Sex: Female

DRUGS (2)
  1. CRAVIT [Suspect]
     Indication: DRUG USE FOR UNKNOWN INDICATION
     Route: 048
     Dates: start: 20040801, end: 20040801
  2. BRUFEN [Concomitant]
     Route: 065

REACTIONS (1)
  - CHOLESTASIS [None]
